FAERS Safety Report 4639917-1 (Version None)
Quarter: 2005Q2

REPORT INFORMATION
  Report Type: 
  Country: None (occurrence: None)
  Receive Date: 20050419
  Receipt Date: 20050412
  Transmission Date: 20051028
  Serious: Yes (Death, Hospitalization)
  Sender: FDA-Public Use
  Company Number: DL2005149

PATIENT
  Age: 21 Year
  Sex: Female

DRUGS (2)
  1. MIFEPRISTONE TABLETS, 200 MG (DANCO LABS) [Suspect]
     Indication: ABORTION INDUCED
     Dosage: 200 MG, ORAL
     Route: 048
     Dates: start: 20031223
  2. MISOPROSTOL [Suspect]
     Dosage: 800 MCG,VAGINAL
     Route: 067
     Dates: start: 20031224

REACTIONS (6)
  - ACUTE PULMONARY OEDEMA [None]
  - CARDIAC FAILURE [None]
  - INFLAMMATION [None]
  - RETAINED PRODUCTS OF CONCEPTION [None]
  - SEPSIS [None]
  - UTERINE ENLARGEMENT [None]
